FAERS Safety Report 9511466 (Version 3)
Quarter: 2013Q4

REPORT INFORMATION
  Report Type: Spontaneous
  Country: US (occurrence: None)
  Receive Date: 20130906
  Receipt Date: 20131010
  Transmission Date: 20140711
  Serious: Yes (Hospitalization)
  Sender: FDA-Public Use
  Company Number: JPI-P-034686

PATIENT
  Age: 30 Year
  Sex: Female
  Weight: 73.5 kg

DRUGS (3)
  1. XYREM (SODIUM OXYBATE) ORAL SOLUTION, 500MG/ML [Suspect]
     Indication: NARCOLEPSY
     Route: 048
     Dates: start: 20120117, end: 2012
  2. XANAX (ALPRAZOLAM) [Suspect]
     Indication: PRODUCT USED FOR UNKNOWN INDICATION
  3. DEXTROAMPHETAMINE (DEXTROAMPHETAMINE) [Concomitant]

REACTIONS (7)
  - Hospitalisation [None]
  - Sedation [None]
  - Labelled drug-drug interaction medication error [None]
  - Accidental overdose [None]
  - Intentional overdose [None]
  - Fluid retention [None]
  - Depressed level of consciousness [None]
